FAERS Safety Report 19784714 (Version 1)
Quarter: 2021Q3

REPORT INFORMATION
  Report Type: Spontaneous
  Country: US (occurrence: US)
  Receive Date: 20210831
  Receipt Date: 20210831
  Transmission Date: 20211014
  Serious: Yes (Death)
  Sender: FDA-Public Use
  Company Number: None

PATIENT
  Sex: Female

DRUGS (2)
  1. OLD SPICE AP?DO UNSPECIFIED [Suspect]
     Active Substance: ALUMINUM ZIRCONIUM TRICHLOROHYDREX GLY
  2. OLD SPICE BODY SPRAY DEODORANT [Suspect]
     Active Substance: COSMETICS

REACTIONS (1)
  - Death [None]
